FAERS Safety Report 23600224 (Version 1)
Quarter: 2024Q1

REPORT INFORMATION
  Report Type: Spontaneous
  Country: FR (occurrence: FR)
  Receive Date: 20240306
  Receipt Date: 20240306
  Transmission Date: 20240410
  Serious: Yes (Death, Hospitalization)
  Sender: FDA-Public Use
  Company Number: FR-STERISCIENCE B.V.-2024-ST-000198

PATIENT
  Age: 87 Year
  Sex: Female

DRUGS (6)
  1. OXACILLIN [Suspect]
     Active Substance: OXACILLIN SODIUM
     Indication: Bacteraemia
     Dosage: UNK
     Route: 042
     Dates: start: 202005, end: 202005
  2. AMOXICILLIN\CLAVULANIC ACID [Suspect]
     Active Substance: AMOXICILLIN\CLAVULANIC ACID
     Indication: Bacteraemia
     Dosage: UNK
     Route: 065
     Dates: start: 202005
  3. CEFEPIME [Suspect]
     Active Substance: CEFEPIME HYDROCHLORIDE
     Indication: Bacteraemia
     Dosage: 2 GRAM, QD,IN THE EVENING
     Route: 042
     Dates: start: 20200519
  4. CEFEPIME [Suspect]
     Active Substance: CEFEPIME HYDROCHLORIDE
     Dosage: 1 GRAM, BID
     Route: 042
     Dates: start: 20200522
  5. METRONIDAZOLE [Suspect]
     Active Substance: METRONIDAZOLE
     Indication: Bacteraemia
     Dosage: UNK
     Route: 042
     Dates: start: 20200519
  6. CEFTRIAXONE [Concomitant]
     Active Substance: CEFTRIAXONE\CEFTRIAXONE SODIUM
     Indication: Bacteraemia
     Dosage: UNK
     Route: 042
     Dates: start: 202005, end: 202005

REACTIONS (1)
  - Drug ineffective for unapproved indication [Fatal]
